FAERS Safety Report 8436520-2 (Version None)
Quarter: 2012Q2

REPORT INFORMATION
  Report Type: 
  Country: None (occurrence: None)
  Receive Date: 20120614
  Receipt Date: 20120606
  Transmission Date: 20120825
  Serious: Yes (Other)
  Sender: FDA-Public Use
  Company Number: US-GLAXOSMITHKLINE-A0981150A

PATIENT
  Age: 49 Year
  Sex: Male
  Weight: 90.9 kg

DRUGS (4)
  1. ROPINIROLE [Suspect]
     Indication: SLEEP DISORDER
     Dosage: 3MG PER DAY
     Route: 065
  2. CLONAZEPAM [Suspect]
     Indication: SLEEP DISORDER
     Dosage: 2MG PER DAY
     Route: 065
  3. SEROQUEL [Suspect]
     Indication: SLEEP DISORDER
     Dosage: 200MG PER DAY
     Route: 065
  4. CHANTIX [Suspect]
     Indication: SMOKING CESSATION THERAPY
     Dosage: 1MG TWICE PER DAY
     Route: 065
     Dates: start: 20120401, end: 20120511

REACTIONS (6)
  - FALL [None]
  - INTENTIONAL SELF-INJURY [None]
  - RESTLESSNESS [None]
  - DRUG INTERACTION [None]
  - FEELING ABNORMAL [None]
  - AGGRESSION [None]
